FAERS Safety Report 24528126 (Version 1)
Quarter: 2024Q4

REPORT INFORMATION
  Report Type: Spontaneous
  Country: US (occurrence: None)
  Receive Date: 20241018
  Receipt Date: 20241018
  Transmission Date: 20250115
  Serious: Yes (Hospitalization)
  Sender: Public
  Company Number: None

PATIENT
  Age: 38 Year
  Sex: Male

DRUGS (1)
  1. DEXAMETHASONE [Suspect]
     Active Substance: DEXAMETHASONE
     Indication: Preoperative care
     Dosage: OTHER FREQUENCY : ONCE;?
     Route: 048

REACTIONS (2)
  - Seizure [None]
  - Nonspecific reaction [None]

NARRATIVE: CASE EVENT DATE: 20240315
